FAERS Safety Report 20628702 (Version 1)
Quarter: 2022Q1

REPORT INFORMATION
  Report Type: Spontaneous
  Country: CN (occurrence: None)
  Receive Date: 20220323
  Receipt Date: 20220323
  Transmission Date: 20220424
  Serious: Yes (Hospitalization)
  Sender: FDA-Public Use
  Company Number: 2022A115553

PATIENT
  Age: 16440 Day
  Sex: Female

DRUGS (6)
  1. OSIMERTINIB [Suspect]
     Active Substance: OSIMERTINIB
     Indication: Lung neoplasm malignant
     Route: 048
     Dates: start: 20211027, end: 20211112
  2. EBASTINE [Concomitant]
     Active Substance: EBASTINE
  3. LEVOCETIRIZINE HYDROCHLORIDE [Concomitant]
     Active Substance: LEVOCETIRIZINE HYDROCHLORIDE
  4. MOMEIASONE FUROATE [Concomitant]
  5. CALAMINE [Concomitant]
     Active Substance: CALAMINE\FERRIC OXIDE RED\ZINC OXIDE
  6. ALBUMIN HUMAN [Concomitant]
     Active Substance: ALBUMIN HUMAN

REACTIONS (1)
  - Acquired epidermolysis bullosa [Recovering/Resolving]

NARRATIVE: CASE EVENT DATE: 20211112
